FAERS Safety Report 10932308 (Version 1)
Quarter: 2015Q1

REPORT INFORMATION
  Report Type: Spontaneous
  Country: US (occurrence: None)
  Receive Date: 20150319
  Receipt Date: 20150319
  Transmission Date: 20150721
  Serious: Yes (Life-Threatening, Disabling, Other)
  Sender: FDA-Public Use
  Company Number: None

PATIENT
  Age: 33 Year
  Sex: Female
  Weight: 61.24 kg

DRUGS (7)
  1. COLLAGEN [Concomitant]
     Active Substance: COLLAGEN
  2. BLOOD PRESSURE MONITOR [Concomitant]
  3. MAGNEVIST [Suspect]
     Active Substance: GADOPENTETATE DIMEGLUMINE
     Indication: NUCLEAR MAGNETIC RESONANCE IMAGING
     Route: 042
     Dates: start: 20150209, end: 20150209
  4. CELERY. [Concomitant]
     Active Substance: CELERY
  5. MAGNEVIST [Suspect]
     Active Substance: GADOPENTETATE DIMEGLUMINE
     Indication: SCAN WITH CONTRAST
     Route: 042
     Dates: start: 20150209, end: 20150209
  6. GLUCOSAMINE [Concomitant]
     Active Substance: GLUCOSAMINE
  7. HIBISCUS TEA [Concomitant]

REACTIONS (10)
  - Drug level increased [None]
  - Visual impairment [None]
  - Myelopathy [None]
  - Abdominal discomfort [None]
  - Muscle spasms [None]
  - Cardiovascular disorder [None]
  - Hypertension [None]
  - Tachycardia [None]
  - Arthralgia [None]
  - Muscle twitching [None]

NARRATIVE: CASE EVENT DATE: 20150209
